FAERS Safety Report 7322792-4 (Version None)
Quarter: 2011Q1

REPORT INFORMATION
  Report Type: 
  Country: None (occurrence: None)
  Receive Date: 20110301
  Receipt Date: 20110218
  Transmission Date: 20110831
  Serious: No
  Sender: FDA-Public Use
  Company Number: US-JNJFOC-20110206180

PATIENT
  Sex: Female
  Weight: 47.63 kg

DRUGS (3)
  1. FENTANYL-100 [Suspect]
     Indication: BACK PAIN
     Dosage: 100 PLUS 25UG/HR
     Route: 062
  2. MORPHINE [Concomitant]
     Indication: PAIN IN EXTREMITY
     Route: 048
  3. FENTANYL-100 [Suspect]
     Indication: BACK PAIN
     Dosage: 100 PLUS 25UG/HR
     Route: 062

REACTIONS (4)
  - PRODUCT QUALITY ISSUE [None]
  - APPLICATION SITE PRURITUS [None]
  - DRUG ADMINISTERED AT INAPPROPRIATE SITE [None]
  - APPLICATION SITE RASH [None]
